FAERS Safety Report 5401391-5 (Version None)
Quarter: 2007Q3

REPORT INFORMATION
  Report Type: 
  Country: None (occurrence: None)
  Receive Date: 20070731
  Receipt Date: 20070725
  Transmission Date: 20080115
  Serious: Yes (Other)
  Sender: FDA-Public Use
  Company Number: PHEH2007US10342

PATIENT
  Sex: Male

DRUGS (1)
  1. ZOMETA [Suspect]
     Indication: MULTIPLE MYELOMA

REACTIONS (12)
  - ANHEDONIA [None]
  - ANXIETY [None]
  - BONE DISORDER [None]
  - DEFORMITY [None]
  - DISCOMFORT [None]
  - EMOTIONAL DISTRESS [None]
  - INFECTION [None]
  - LIFE EXPECTANCY SHORTENED [None]
  - MOBILITY DECREASED [None]
  - ORAL INTAKE REDUCED [None]
  - OSTEONECROSIS [None]
  - PAIN [None]
